FAERS Safety Report 21689463 (Version 1)
Quarter: 2022Q4

REPORT INFORMATION
  Report Type: Spontaneous
  Country: AU (occurrence: AU)
  Receive Date: 20221206
  Receipt Date: 20221206
  Transmission Date: 20230112
  Serious: Yes (Other)
  Sender: FDA-Public Use
  Company Number: AU-BRISTOL-MYERS SQUIBB COMPANY-2022-145230

PATIENT

DRUGS (2)
  1. NIVOLUMAB [Suspect]
     Active Substance: NIVOLUMAB
     Indication: Gastrointestinal disorder
     Dosage: DOSE : UNAVAILABLE;     FREQ : UNAVAILABLE
     Route: 065
  2. CAPECITABINE\OXALIPLATIN [Suspect]
     Active Substance: CAPECITABINE\OXALIPLATIN
     Indication: Gastrointestinal disorder
     Route: 065

REACTIONS (7)
  - Hepatitis [Unknown]
  - Cold dysaesthesia [Unknown]
  - Neuropathy peripheral [Unknown]
  - Bulbar palsy [Unknown]
  - Myasthenia gravis [Unknown]
  - Rash pustular [Unknown]
  - Myositis [Unknown]
